FAERS Safety Report 7449668-6 (Version None)
Quarter: 2011Q1

REPORT INFORMATION
  Report Type: 
  Country: None (occurrence: None)
  Receive Date: 20110302
  Receipt Date: 20101202
  Transmission Date: 20110831
  Serious: No
  Sender: FDA-Public Use
  Company Number: 023158

PATIENT
  Sex: Female
  Weight: 61.2 kg

DRUGS (3)
  1. CIMZIA [Suspect]
     Indication: CROHN'S DISEASE
     Dosage: 400 MG 1X/2 WEEKS, 0, 2 + 4 SUBCUTANEOUS
     Route: 058
     Dates: start: 20101117
  2. CIPROFLOXACIN [Concomitant]
  3. IRON [Concomitant]

REACTIONS (1)
  - INJECTION SITE NODULE [None]
